FAERS Safety Report 18577840 (Version 1)
Quarter: 2020Q4

REPORT INFORMATION
  Report Type: Spontaneous
  Country: US (occurrence: US)
  Receive Date: 20201204
  Receipt Date: 20201204
  Transmission Date: 20210114
  Serious: Yes (Hospitalization, Other)
  Sender: FDA-Public Use
  Company Number: US-AUROBINDO-AUR-APL-2013-01018

PATIENT
  Age: 62 Year
  Sex: Male

DRUGS (1)
  1. LISINOPRIL. [Suspect]
     Active Substance: LISINOPRIL
     Indication: PRODUCT USED FOR UNKNOWN INDICATION
     Dosage: UNK
     Route: 065

REACTIONS (7)
  - Swelling face [Recovering/Resolving]
  - Swollen tongue [Recovering/Resolving]
  - Angioedema [Recovering/Resolving]
  - Speech disorder [Recovering/Resolving]
  - Dysarthria [Recovering/Resolving]
  - Facial asymmetry [Recovering/Resolving]
  - Lip swelling [Recovering/Resolving]
